FAERS Safety Report 19318541 (Version 19)
Quarter: 2022Q3

REPORT INFORMATION
  Report Type: Report from Study
  Country: CN (occurrence: None)
  Receive Date: 20210527
  Receipt Date: 20220715
  Transmission Date: 20221027
  Serious: Yes (Hospitalization)
  Sender: FDA-Public Use
  Company Number: CN-ROCHE-2835238

PATIENT
  Age: 66 Year
  Sex: Male
  Weight: 68 kg

DRUGS (54)
  1. PLACEBO [Suspect]
     Active Substance: UNSPECIFIED INGREDIENT
     Indication: Small cell lung cancer extensive stage
     Dosage: ON 09/JUN/2021, MOST RECENT DOSE OF BLINDED TIRAGOLUMAB RECEIVED PRIOR TO EVENT ONSET.?ON 03/AUG/20
     Route: 042
     Dates: start: 20210518
  2. PLACEBO [Suspect]
     Active Substance: UNSPECIFIED INGREDIENT
     Route: 042
     Dates: start: 20210609
  3. ATEZOLIZUMAB [Suspect]
     Active Substance: ATEZOLIZUMAB
     Indication: Small cell lung cancer extensive stage
     Dosage: ON 09/JUN/2021, MOST RECENT DOSE OF ATEZOLIZUMAB RECEIVED PRIOR TO EVENT ONSET.?ON 03/AUG/2021, MOST
     Route: 041
     Dates: start: 20210518
  4. ATEZOLIZUMAB [Suspect]
     Active Substance: ATEZOLIZUMAB
     Route: 041
     Dates: start: 20210609
  5. CARBOPLATIN [Suspect]
     Active Substance: CARBOPLATIN
     Indication: Small cell lung cancer extensive stage
     Dosage: ON 03/AUG/2021, MOST RECENT DOSE (587 MG) OF CARBOPLATIN RECEIVED PRIOR TO EVENT INTESTINAL POLYP.?O
     Route: 042
     Dates: start: 20210518
  6. ETOPOSIDE [Suspect]
     Active Substance: ETOPOSIDE
     Indication: Small cell lung cancer extensive stage
     Dosage: START DATE OF MOST RECENT DOSE (177 MG) OF CARBOPLATIN PRIOR TO SAE 19/MAY/2021?ON 05/AUG/2021, MOST
     Route: 042
     Dates: start: 20210518
  7. DEXAMETHASONE SODIUM PHOSPHATE [Concomitant]
     Active Substance: DEXAMETHASONE SODIUM PHOSPHATE
     Route: 042
     Dates: start: 20210520, end: 20210520
  8. CEFOPERAZONE SODIUM\SULBACTAM [Concomitant]
     Active Substance: CEFOPERAZONE SODIUM\SULBACTAM
     Route: 042
     Dates: start: 20210522, end: 20210522
  9. CEFOPERAZONE SODIUM\SULBACTAM [Concomitant]
     Active Substance: CEFOPERAZONE SODIUM\SULBACTAM
     Route: 042
     Dates: start: 20210520, end: 20210520
  10. BUDESONIDE [Concomitant]
     Active Substance: BUDESONIDE
     Route: 055
  11. CYSTEINE [Concomitant]
     Active Substance: CYSTEINE
  12. COMPOUND METHOXYPHENAMINE [Concomitant]
     Dosage: DOSE AND DOSE UNIT: 2 CAPSULE
     Route: 048
     Dates: start: 20210520, end: 20210526
  13. COMPOUND METHOXYPHENAMINE [Concomitant]
     Dates: start: 20210516, end: 20210519
  14. COMPOUND METHOXYPHENAMINE [Concomitant]
     Route: 048
     Dates: start: 20210609, end: 20210619
  15. FOSAPREPITANT DIMEGLUMINE [Concomitant]
     Active Substance: FOSAPREPITANT DIMEGLUMINE
     Indication: Nausea
     Route: 042
     Dates: start: 20210518, end: 20210518
  16. FOSAPREPITANT DIMEGLUMINE [Concomitant]
     Active Substance: FOSAPREPITANT DIMEGLUMINE
     Indication: Vomiting
     Route: 042
     Dates: start: 20210609, end: 20210609
  17. FOSAPREPITANT DIMEGLUMINE [Concomitant]
     Active Substance: FOSAPREPITANT DIMEGLUMINE
     Dates: start: 20210713, end: 20210713
  18. PALONOSETRON HYDROCHLORIDE [Concomitant]
     Active Substance: PALONOSETRON HYDROCHLORIDE
     Dosage: FREQUENCY: EVERY OTHER DAY
     Route: 042
     Dates: start: 20210518, end: 20210520
  19. PALONOSETRON HYDROCHLORIDE [Concomitant]
     Active Substance: PALONOSETRON HYDROCHLORIDE
     Route: 042
     Dates: start: 20210606, end: 20210611
  20. PALONOSETRON HYDROCHLORIDE [Concomitant]
     Active Substance: PALONOSETRON HYDROCHLORIDE
     Dates: start: 20210713, end: 20210715
  21. LANSOPRAZOLE [Concomitant]
     Active Substance: LANSOPRAZOLE
     Route: 042
     Dates: start: 20210519, end: 20210519
  22. LANSOPRAZOLE [Concomitant]
     Active Substance: LANSOPRAZOLE
     Route: 042
     Dates: start: 20210609, end: 20210609
  23. GLUTATHIONE REDUCED [Concomitant]
     Route: 042
     Dates: start: 20210519, end: 20210520
  24. AMBROXOL HYDROCHLORIDE [Concomitant]
     Active Substance: AMBROXOL HYDROCHLORIDE
     Indication: Productive cough
     Route: 042
     Dates: start: 20210521, end: 20210521
  25. AMBROXOL HYDROCHLORIDE [Concomitant]
     Active Substance: AMBROXOL HYDROCHLORIDE
     Route: 042
     Dates: start: 20210520, end: 20210520
  26. EGG PHOSPHOLIPIDS\GLYCERIN\SOYBEAN OIL [Concomitant]
     Active Substance: EGG PHOSPHOLIPIDS\GLYCERIN\SOYBEAN OIL
     Route: 042
     Dates: start: 20210520, end: 20210521
  27. STRUCTURAL FAT EMULSION INJECTION (C6-24) [Concomitant]
     Route: 042
     Dates: start: 20210520, end: 20210521
  28. STRUCTURAL FAT EMULSION INJECTION (C6-24) [Concomitant]
     Dates: start: 20210804, end: 20210806
  29. IRBESARTAN [Concomitant]
     Active Substance: IRBESARTAN
     Indication: Hypertension
     Route: 048
  30. AMLODIPINE BESYLATE [Concomitant]
     Active Substance: AMLODIPINE BESYLATE
     Indication: Hypertension
     Route: 048
     Dates: start: 20210524
  31. MEGESTROL ACETATE [Concomitant]
     Active Substance: MEGESTROL ACETATE
     Indication: Decreased appetite
     Dates: start: 20210803, end: 20210818
  32. AMIODARONE HYDROCHLORIDE [Concomitant]
     Active Substance: AMIODARONE HYDROCHLORIDE
     Route: 048
     Dates: start: 20210804, end: 20210813
  33. AMIODARONE HYDROCHLORIDE [Concomitant]
     Active Substance: AMIODARONE HYDROCHLORIDE
     Dates: start: 20210813, end: 20210909
  34. MUSK PASS PILL [Concomitant]
     Dates: start: 20210813, end: 20210909
  35. COMPOUND GLYCYRRHIZIN (UNK INGREDIENTS) [Concomitant]
     Dates: start: 20210824, end: 20210830
  36. COMPOUND GLYCYRRHIZIN (UNK INGREDIENTS) [Concomitant]
     Dates: start: 20210624, end: 20210702
  37. LEUCOGEN [Concomitant]
     Active Substance: LEUCOGEN
     Dates: start: 20210909, end: 20210914
  38. LEUCOGEN [Concomitant]
     Active Substance: LEUCOGEN
     Dates: start: 20210611, end: 20210624
  39. LEUCOGEN [Concomitant]
     Active Substance: LEUCOGEN
     Dates: start: 20210625, end: 20210628
  40. POTASSIUM CHLORIDE [Concomitant]
     Active Substance: POTASSIUM CHLORIDE
     Route: 042
     Dates: start: 20210609, end: 20210609
  41. POTASSIUM CHLORIDE [Concomitant]
     Active Substance: POTASSIUM CHLORIDE
     Dates: start: 20210803, end: 20210806
  42. ONDANSETRON HYDROCHLORIDE [Concomitant]
     Active Substance: ONDANSETRON HYDROCHLORIDE
     Route: 048
     Dates: start: 20210611, end: 20210611
  43. THROMBOPOIETIN [Concomitant]
     Active Substance: THROMBOPOIETIN
     Indication: Platelet count decreased
     Dates: start: 20210621, end: 20210626
  44. THROMBOPOIETIN [Concomitant]
     Active Substance: THROMBOPOIETIN
     Dates: start: 20210629, end: 20210701
  45. PIPERACILLIN SODIUM\TAZOBACTAM SODIUM [Concomitant]
     Active Substance: PIPERACILLIN SODIUM\TAZOBACTAM SODIUM
     Route: 042
     Dates: start: 20210625, end: 20210628
  46. PIPERACILLIN SODIUM\TAZOBACTAM SODIUM [Concomitant]
     Active Substance: PIPERACILLIN SODIUM\TAZOBACTAM SODIUM
     Route: 042
     Dates: start: 20210630, end: 20210701
  47. PANTOPRAZOLE SODIUM [Concomitant]
     Active Substance: PANTOPRAZOLE SODIUM
     Dates: start: 20210803, end: 20210806
  48. ACETAMINOPHEN [Concomitant]
     Active Substance: ACETAMINOPHEN
     Indication: Pyrexia
     Dates: start: 20210625, end: 20210627
  49. DESLANOSIDE [Concomitant]
     Active Substance: DESLANOSIDE
     Route: 042
     Dates: start: 20210803, end: 20210803
  50. SOLU-MEDROL [Concomitant]
     Active Substance: METHYLPREDNISOLONE SODIUM SUCCINATE
     Indication: Chest discomfort
     Route: 042
     Dates: start: 20210522, end: 20210524
  51. SOLU-MEDROL [Concomitant]
     Active Substance: METHYLPREDNISOLONE SODIUM SUCCINATE
     Indication: Dyspnoea
  52. VITAMIN B6 [Concomitant]
     Active Substance: PYRIDOXINE HYDROCHLORIDE
  53. VITAMIN C [Concomitant]
     Active Substance: ASCORBIC ACID
  54. METOCLOPRAMIDE DIHYDROCHLORIDE [Concomitant]
     Dates: start: 20210804, end: 20210804

REACTIONS (2)
  - Infective exacerbation of bronchiectasis [Not Recovered/Not Resolved]
  - Intestinal polyp [Recovered/Resolved]

NARRATIVE: CASE EVENT DATE: 20210518
